FAERS Safety Report 10527218 (Version 1)
Quarter: 2014Q4

REPORT INFORMATION
  Report Type: Spontaneous
  Country: US (occurrence: None)
  Receive Date: 20141016
  Receipt Date: 20141016
  Transmission Date: 20150528
  Serious: No
  Sender: FDA-Public Use
  Company Number: None

PATIENT
  Age: 68 Year
  Sex: Female
  Weight: 81.65 kg

DRUGS (1)
  1. BUPROPION (EXTEDED RELEASE) [Suspect]
     Active Substance: BUPROPION
     Indication: DEPRESSION
     Dosage: 3X150 MG/DAY.
     Route: 048
     Dates: start: 20140101, end: 20141006

REACTIONS (2)
  - Depression [None]
  - Product substitution issue [None]

NARRATIVE: CASE EVENT DATE: 20141007
